FAERS Safety Report 16049934 (Version 3)
Quarter: 2019Q2

REPORT INFORMATION
  Report Type: Spontaneous
  Country: US (occurrence: US)
  Receive Date: 20190308
  Receipt Date: 20190517
  Transmission Date: 20190711
  Serious: Yes (Other)
  Sender: FDA-Public Use
  Company Number: US-JNJFOC-20190222091

PATIENT
  Sex: Female
  Weight: 86.18 kg

DRUGS (9)
  1. LORAZEPAM. [Concomitant]
     Active Substance: LORAZEPAM
     Indication: ANXIETY
     Dosage: 0.5 TO 1 MG, AS NEEDED AND 1.5 MG AT THE MOST
     Route: 065
  2. RISPERDAL [Suspect]
     Active Substance: RISPERIDONE
     Indication: BIPOLAR DISORDER
     Dosage: 04-07 MG??JUL-2017 OR AUG-2017
     Route: 048
     Dates: start: 201704
  3. RISPERDAL [Suspect]
     Active Substance: RISPERIDONE
     Indication: PSYCHOTIC DISORDER
     Dosage: 04-07 MG??JUL-2017 OR AUG-2017
     Route: 048
     Dates: start: 201704
  4. DEPAKOTE [Suspect]
     Active Substance: DIVALPROEX SODIUM
     Indication: BIPOLAR DISORDER
     Route: 048
     Dates: start: 201704
  5. MIRALAX [Concomitant]
     Active Substance: POLYETHYLENE GLYCOL 3350
     Route: 065
  6. RISPERDAL [Suspect]
     Active Substance: RISPERIDONE
     Indication: SCHIZOAFFECTIVE DISORDER
     Dosage: 04-07 MG??JUL-2017 OR AUG-2017
     Route: 048
     Dates: start: 201704
  7. DEPAKOTE [Suspect]
     Active Substance: DIVALPROEX SODIUM
     Indication: PSYCHOTIC DISORDER
     Route: 048
     Dates: start: 201704
  8. DEPAKOTE [Suspect]
     Active Substance: DIVALPROEX SODIUM
     Indication: SCHIZOAFFECTIVE DISORDER
     Route: 048
     Dates: start: 201704
  9. LORAZEPAM. [Concomitant]
     Active Substance: LORAZEPAM
     Indication: SLEEP DISORDER THERAPY
     Dosage: 0.5 TO 1 MG, AS NEEDED AND 1.5 MG AT THE MOST
     Route: 065

REACTIONS (5)
  - Obesity [Not Recovered/Not Resolved]
  - Hallucination [Unknown]
  - Agitation [Unknown]
  - Anxiety [Unknown]
  - Delusion [Unknown]

NARRATIVE: CASE EVENT DATE: 2017
